FAERS Safety Report 9557201 (Version 1)
Quarter: 2013Q3

REPORT INFORMATION
  Report Type: Spontaneous
  Country: US (occurrence: None)
  Receive Date: 20130726
  Receipt Date: 20130726
  Transmission Date: 20140515
  Serious: Yes (Hospitalization)
  Sender: FDA-Public Use
  Company Number: UTC-024562

PATIENT
  Age: 27 Year
  Sex: Female
  Weight: 48.18 kg

DRUGS (2)
  1. REMODULIN (1 MILLIGRAM/ MILLILITERS, INJECTION FOR INFUSION) (TREPROSTINIL SODIUM) [Suspect]
     Indication: COR PULMONALE CHRONIC
     Dosage: 33.12 UG/KG (0.023 UG/KG, 1 IN 1 MIN)
     Route: 041
     Dates: start: 20080508
  2. COUMADIN (WARFARIN SODIUM) [Concomitant]

REACTIONS (3)
  - Device related infection [None]
  - Skin induration [None]
  - Pruritus [None]
